FAERS Safety Report 24814584 (Version 2)
Quarter: 2025Q1

REPORT INFORMATION
  Report Type: Report from Study
  Country: CO (occurrence: CO)
  Receive Date: 20250107
  Receipt Date: 20250306
  Transmission Date: 20250409
  Serious: Yes (Death, Hospitalization, Other)
  Sender: BAYER HEALTHCARE PHARMACEUTICALS INC.
  Company Number: CO-BAYER-2024A109100

PATIENT
  Age: 29 Year
  Sex: Female

DRUGS (8)
  1. ADEMPAS [Suspect]
     Active Substance: RIOCIGUAT
     Indication: Pulmonary arterial hypertension
     Dosage: 0.5 MG, Q8HR
     Route: 048
     Dates: start: 20230417
  2. ADEMPAS [Suspect]
     Active Substance: RIOCIGUAT
     Indication: Pulmonary arterial hypertension
     Dosage: 0.5 MG, Q8HR
     Route: 048
     Dates: start: 201304, end: 20241118
  3. XARELTO [Concomitant]
     Active Substance: RIVAROXABAN
  4. DIPYRONE [Concomitant]
     Active Substance: DIPYRONE
     Route: 030
  5. ALBUTEROL [Concomitant]
     Active Substance: ALBUTEROL
  6. FENOTEROL HYDROBROMIDE\IPRATROPIUM BROMIDE [Concomitant]
     Active Substance: FENOTEROL HYDROBROMIDE\IPRATROPIUM BROMIDE
  7. PREDNISOLONE [Concomitant]
     Active Substance: PREDNISOLONE
     Route: 048
  8. OXYGEN [Concomitant]
     Active Substance: OXYGEN
     Dates: start: 202001

REACTIONS (18)
  - Hypoxia [Recovering/Resolving]
  - Delirium [Recovering/Resolving]
  - Ovarian abscess [Recovered/Resolved with Sequelae]
  - Fallopian tube cyst [Recovered/Resolved]
  - Oxygen saturation decreased [Recovered/Resolved]
  - Pneumonia respiratory syncytial viral [Recovered/Resolved]
  - Syncope [Not Recovered/Not Resolved]
  - Cyanosis [Not Recovered/Not Resolved]
  - Musculoskeletal stiffness [Not Recovered/Not Resolved]
  - Anal incontinence [Not Recovered/Not Resolved]
  - Death [Fatal]
  - Tremor [Recovering/Resolving]
  - Pyrexia [Recovering/Resolving]
  - Chills [Recovering/Resolving]
  - Nasal congestion [Recovering/Resolving]
  - Wrong technique in product usage process [None]
  - Product availability issue [None]
  - Therapy interrupted [None]

NARRATIVE: CASE EVENT DATE: 20240724
